FAERS Safety Report 8284145-4 (Version None)
Quarter: 2012Q2

REPORT INFORMATION
  Report Type: 
  Country: None (occurrence: None)
  Receive Date: 20120413
  Receipt Date: 20120216
  Transmission Date: 20120825
  Serious: No
  Sender: FDA-Public Use
  Company Number: US-ASTRAZENECA-2012SE06662

PATIENT
  Age: 48 Year
  Sex: Female

DRUGS (3)
  1. NEXIUM [Suspect]
     Route: 048
  2. OMEPRAZOLE [Suspect]
     Route: 048
  3. PRILOSEC OTC [Suspect]
     Route: 048

REACTIONS (10)
  - OROPHARYNGEAL PAIN [None]
  - INCORRECT DOSE ADMINISTERED [None]
  - ADVERSE EVENT [None]
  - DRUG DOSE OMISSION [None]
  - ABDOMINAL PAIN UPPER [None]
  - MALAISE [None]
  - DRUG INEFFECTIVE [None]
  - THROAT IRRITATION [None]
  - DRUG INTOLERANCE [None]
  - GASTROOESOPHAGEAL REFLUX DISEASE [None]
